FAERS Safety Report 16048528 (Version 1)
Quarter: 2019Q1

REPORT INFORMATION
  Report Type: Spontaneous
  Country: US (occurrence: US)
  Receive Date: 20190307
  Receipt Date: 20190307
  Transmission Date: 20190418
  Serious: Yes (Disabling, Other)
  Sender: FDA-Public Use
  Company Number: US-REGENERON PHARMACEUTICALS, INC.-2019-20433

PATIENT

DRUGS (2)
  1. EYLEA [Suspect]
     Active Substance: AFLIBERCEPT
     Indication: DIABETIC RETINAL OEDEMA
     Dosage: 6-8 YEARS OU
     Route: 031
  2. EYLEA [Suspect]
     Active Substance: AFLIBERCEPT
     Dosage: LAST PRIOR EVENT OS
     Route: 031
     Dates: start: 20170603, end: 20170603

REACTIONS (4)
  - Cataract [Unknown]
  - Blindness unilateral [Unknown]
  - Eye infection staphylococcal [Unknown]
  - Vitrectomy [Unknown]

NARRATIVE: CASE EVENT DATE: 20170605
